FAERS Safety Report 11599945 (Version 1)
Quarter: 2015Q4

REPORT INFORMATION
  Report Type: Spontaneous
  Country: US (occurrence: US)
  Receive Date: 20151006
  Receipt Date: 20151006
  Transmission Date: 20160304
  Serious: Yes (Other)
  Sender: FDA-Public Use
  Company Number: US-AMGEN-USASP2015029572

PATIENT
  Age: 77 Year
  Sex: Female

DRUGS (1)
  1. PROLIA [Suspect]
     Active Substance: DENOSUMAB
     Indication: OSTEOPENIA
     Dosage: UNK, UNK
     Route: 065
     Dates: start: 201410

REACTIONS (9)
  - Chest discomfort [Recovered/Resolved]
  - Body height decreased [Unknown]
  - Pain in extremity [Unknown]
  - Cellulitis [Unknown]
  - Joint swelling [Not Recovered/Not Resolved]
  - Peripheral swelling [Recovered/Resolved]
  - Skin swelling [Unknown]
  - Swelling [Recovered/Resolved]
  - Arthritis [Unknown]

NARRATIVE: CASE EVENT DATE: 201412
